FAERS Safety Report 12262925 (Version 1)
Quarter: 2016Q2

REPORT INFORMATION
  Report Type: Spontaneous
  Country: US (occurrence: US)
  Receive Date: 20160413
  Receipt Date: 20160413
  Transmission Date: 20160815
  Serious: No
  Sender: FDA-Public Use
  Company Number: US-ASTRAZENECA-2015SE76475

PATIENT
  Age: 21550 Day
  Sex: Female
  Weight: 124.7 kg

DRUGS (7)
  1. BYETTA [Suspect]
     Active Substance: EXENATIDE
     Indication: TYPE 2 DIABETES MELLITUS
     Dosage: 2.4 ML PEN , 250UG
     Route: 058
  2. BENICAR [Concomitant]
     Active Substance: OLMESARTAN MEDOXOMIL
  3. SIMVASTATIN. [Concomitant]
     Active Substance: SIMVASTATIN
  4. POTASSIUM CHLORIDE. [Concomitant]
     Active Substance: POTASSIUM CHLORIDE
  5. METFORMIN [Concomitant]
     Active Substance: METFORMIN HYDROCHLORIDE
  6. FUROSEMIDE. [Concomitant]
     Active Substance: FUROSEMIDE
  7. BABY ASPIRIN [Concomitant]
     Active Substance: ASPIRIN

REACTIONS (5)
  - Intentional product misuse [Unknown]
  - Gastrointestinal pain [Unknown]
  - Vomiting [Unknown]
  - Malaise [Unknown]
  - Drug dose omission [Unknown]

NARRATIVE: CASE EVENT DATE: 20150803
